FAERS Safety Report 12172407 (Version 1)
Quarter: 2016Q1

REPORT INFORMATION
  Report Type: Report from Study
  Country: US (occurrence: US)
  Receive Date: 20160311
  Receipt Date: 20160311
  Transmission Date: 20160526
  Serious: Yes (Death, Hospitalization)
  Sender: FDA-Public Use
  Company Number: US-ASTRAZENECA-2016SE03953

PATIENT
  Age: 73 Year
  Sex: Male

DRUGS (2)
  1. TAGRISSO [Suspect]
     Active Substance: OSIMERTINIB
     Route: 048
     Dates: start: 20151231
  2. XARELTO [Concomitant]
     Active Substance: RIVAROXABAN

REACTIONS (2)
  - Dyspnoea [Unknown]
  - Death [Fatal]
